FAERS Safety Report 8890296 (Version 2)
Quarter: 2013Q2

REPORT INFORMATION
  Report Type: Spontaneous
  Country: CA (occurrence: CA)
  Receive Date: 20121107
  Receipt Date: 20130515
  Transmission Date: 20140414
  Serious: Yes (Other)
  Sender: FDA-Public Use
  Company Number: CA-ELI_LILLY_AND_COMPANY-CA201210008350

PATIENT
  Age: 58 Year
  Sex: Female

DRUGS (23)
  1. CYMBALTA [Suspect]
     Indication: FIBROMYALGIA
     Dosage: 30 MG, QD
     Dates: start: 20121012, end: 20121018
  2. CYMBALTA [Suspect]
     Dosage: 60 MG, QD
     Dates: start: 20121019
  3. CLONIDINE [Concomitant]
     Dosage: 0.2 MG, BID
  4. ATACAND [Concomitant]
     Dosage: 32 MG, BID
  5. TRANDATE [Concomitant]
     Dosage: 100 MG, BID
  6. HYDROCHLOROTHIAZIDE [Concomitant]
     Dosage: 25 MG, UNKNOWN
  7. NORVASC [Concomitant]
     Dosage: 5 MG, BID
  8. HYDROMORPH CONTIN [Concomitant]
     Dosage: 4.5 MG, PRN
  9. FERROUS GLUCONATE [Concomitant]
     Dosage: 300 MG, UNKNOWN
  10. DEPO-MEDROL [Concomitant]
     Dosage: 8 MG, PRN
  11. NEXIUM [Concomitant]
     Dosage: 40 MG, QD
  12. PLAQUENIL [Concomitant]
     Dosage: 200 MG, UNKNOWN
  13. MOBICOX [Concomitant]
  14. TYLENOL EXTRA STRENGTH [Concomitant]
  15. MULTIVITAMIN [Concomitant]
  16. CALCIUM W/MINERALS/VITAMIN D NOS [Concomitant]
  17. GLUCOSAMINE [Concomitant]
  18. OMEGA 3 [Concomitant]
  19. LUTEIN [Concomitant]
  20. IMURAN [Concomitant]
  21. FLEXERIL [Concomitant]
  22. EFFEXOR [Concomitant]
  23. CYCLOBENZAPRINE [Concomitant]

REACTIONS (15)
  - Hyponatraemia [Recovered/Resolved]
  - Glucose tolerance impaired [Unknown]
  - Blood pressure decreased [Recovered/Resolved]
  - Orthostatic hypotension [Unknown]
  - Insomnia [Unknown]
  - Nausea [Unknown]
  - Pruritus [Unknown]
  - Fatigue [Unknown]
  - Disturbance in attention [Unknown]
  - Vision blurred [Unknown]
  - Headache [Unknown]
  - Dizziness [Unknown]
  - Hyperhidrosis [Unknown]
  - Tremor [Unknown]
  - Poor quality sleep [Unknown]
